FAERS Safety Report 10162439 (Version 2)
Quarter: 2014Q2

REPORT INFORMATION
  Report Type: Report from Study
  Country: DE (occurrence: DE)
  Receive Date: 20140509
  Receipt Date: 20140530
  Transmission Date: 20141212
  Serious: Yes (Hospitalization)
  Sender: FDA-Public Use
  Company Number: DE-CELGENEUS-062-21660-14045490

PATIENT
  Age: 73 Year
  Sex: Female

DRUGS (4)
  1. ABRAXANE [Suspect]
     Indication: BREAST CANCER METASTATIC
     Route: 041
     Dates: start: 20140313, end: 20140410
  2. METOHEXAL [Concomitant]
     Indication: ATRIAL FIBRILLATION
     Dosage: 35 MILLIGRAM
     Route: 065
     Dates: start: 201006
  3. SPIRONOLACTONE [Concomitant]
     Indication: CARDIAC FAILURE CHRONIC
     Route: 065
     Dates: start: 201006
  4. ATACAND [Concomitant]
     Indication: CARDIAC FAILURE CHRONIC
     Dosage: 8 MILLIGRAM
     Route: 065
     Dates: start: 201006

REACTIONS (2)
  - Stomatitis [Recovered/Resolved]
  - Blood creatinine increased [Recovered/Resolved]
